FAERS Safety Report 9214079 (Version 1)
Quarter: 2013Q2

REPORT INFORMATION
  Report Type: Spontaneous
  Country: US (occurrence: None)
  Receive Date: 20130404
  Receipt Date: 20130404
  Transmission Date: 20140414
  Serious: Yes (Hospitalization)
  Sender: FDA-Public Use
  Company Number: None

PATIENT
  Age: 61 Year
  Sex: Male
  Weight: 59.7 kg

DRUGS (1)
  1. MELOXICAM [Suspect]
     Indication: BACK PAIN
     Route: 048
     Dates: start: 20100823, end: 20130312

REACTIONS (1)
  - Haemorrhage [None]
